FAERS Safety Report 16465792 (Version 1)
Quarter: 2019Q2

REPORT INFORMATION
  Report Type: Spontaneous
  Country: US (occurrence: US)
  Receive Date: 20190621
  Receipt Date: 20190621
  Transmission Date: 20190711
  Serious: No
  Sender: FDA-Public Use
  Company Number: US-BAUSCH-BL-2019-018245

PATIENT
  Sex: Female

DRUGS (1)
  1. SILIQ [Suspect]
     Active Substance: BRODALUMAB
     Indication: PRODUCT USED FOR UNKNOWN INDICATION
     Dosage: DOSING INFORMATION: AS STATED IN SILIQ PACKAGE INSERT
     Route: 065
     Dates: start: 2019

REACTIONS (2)
  - Arthritis [Unknown]
  - Swelling [Unknown]

NARRATIVE: CASE EVENT DATE: 2019
